FAERS Safety Report 4747152-1 (Version None)
Quarter: 2005Q3

REPORT INFORMATION
  Report Type: 
  Country: None (occurrence: None)
  Receive Date: 20050815
  Receipt Date: 20050801
  Transmission Date: 20060218
  Serious: Yes (Death)
  Sender: FDA-Public Use
  Company Number: US_0502112784

PATIENT
  Age: 83 Year
  Sex: Male
  Weight: 100 kg

DRUGS (7)
  1. ZYPREXA [Suspect]
     Indication: DEMENTIA ALZHEIMER'S TYPE
     Dates: start: 20010910, end: 20010720
  2. PIOGLITAZONE HCL [Concomitant]
  3. RISPERIDONE [Concomitant]
  4. HALOPERIDOL [Concomitant]
  5. MIRTAZAPINE [Concomitant]
  6. SERTRALINE HCL [Concomitant]
  7. LASIX [Concomitant]

REACTIONS (1)
  - DIABETES MELLITUS [None]
